FAERS Safety Report 18644445 (Version 2)
Quarter: 2020Q4

REPORT INFORMATION
  Report Type: Report from Study
  Country: US (occurrence: US)
  Receive Date: 20201221
  Receipt Date: 20201225
  Transmission Date: 20210114
  Serious: Yes (Hospitalization)
  Sender: FDA-Public Use
  Company Number: US-B.I. PHARMACEUTICALS,INC./RIDGEFIELD-2020-BI-061790

PATIENT
  Age: 61 Year
  Sex: Female

DRUGS (1)
  1. OFEV [Suspect]
     Active Substance: NINTEDANIB
     Indication: IDIOPATHIC PULMONARY FIBROSIS
     Dosage: 150 MG BID
     Route: 048
     Dates: start: 20201104, end: 20201126

REACTIONS (11)
  - Hepatic enzyme increased [Unknown]
  - Retching [Unknown]
  - Headache [Unknown]
  - Feeding disorder [Recovered/Resolved]
  - Diarrhoea [Unknown]
  - Cholecystitis infective [Recovering/Resolving]
  - Hepatic infection [Unknown]
  - Vomiting [Recovered/Resolved]
  - Sleep disorder [Unknown]
  - Abdominal pain upper [Recovered/Resolved]
  - Nausea [Unknown]

NARRATIVE: CASE EVENT DATE: 202011
